FAERS Safety Report 9731486 (Version 3)
Quarter: 2014Q2

REPORT INFORMATION
  Report Type: Spontaneous
  Country: CA (occurrence: None)
  Receive Date: 20131203
  Receipt Date: 20140424
  Transmission Date: 20141212
  Serious: Yes (Death, Hospitalization)
  Sender: FDA-Public Use
  Company Number: CA-013818

PATIENT
  Age: 83 Year
  Sex: Male

DRUGS (1)
  1. DEGARELIX (FIRMAGON) (240 MG, 80 MG) [Suspect]
     Indication: PROSTATE CANCER
     Dosage: 240 MG 1X SUBCUTANEOUS, 80 MG 1X/MONTH SUBCUTANEOUS
     Route: 058
     Dates: start: 2012, end: 2012

REACTIONS (4)
  - Cardiac failure congestive [None]
  - Injection site pain [None]
  - Chills [None]
  - Feeling cold [None]
